FAERS Safety Report 9808996 (Version 1)
Quarter: 2014Q1

REPORT INFORMATION
  Report Type: Spontaneous
  Country: US (occurrence: US)
  Receive Date: 20140110
  Receipt Date: 20140110
  Transmission Date: 20141002
  Serious: Yes (Disabling)
  Sender: FDA-Public Use
  Company Number: US-GLAXOSMITHKLINE-A1052471A

PATIENT
  Age: 61 Year
  Sex: Male
  Weight: 118.6 kg

DRUGS (13)
  1. BREO ELLIPTA [Suspect]
     Indication: CHRONIC OBSTRUCTIVE PULMONARY DISEASE
     Route: 055
     Dates: start: 20131119, end: 20131119
  2. BENAZAPRIL [Concomitant]
  3. CARVEDILOL [Concomitant]
  4. PLAVIX [Concomitant]
  5. FLEXERIL [Concomitant]
  6. VYTORIN [Concomitant]
  7. FUROSEMIDE [Concomitant]
  8. LANTUS [Concomitant]
  9. METFORMIN [Concomitant]
  10. ACTOS [Concomitant]
  11. JANUVIA [Concomitant]
  12. SPIRIVA [Concomitant]
  13. LEXAPRO [Concomitant]

REACTIONS (3)
  - Feeling abnormal [Recovered/Resolved]
  - Transient global amnesia [Recovered/Resolved]
  - Disorientation [Recovered/Resolved]
